FAERS Safety Report 4913217-4 (Version None)
Quarter: 2006Q1

REPORT INFORMATION
  Report Type: 
  Country: None (occurrence: None)
  Receive Date: 20060215
  Receipt Date: 20051019
  Transmission Date: 20060701
  Serious: Yes (Hospitalization)
  Sender: FDA-Public Use
  Company Number: US-MERCK-0510USA07911

PATIENT
  Age: 63 Year
  Sex: Female
  Weight: 77 kg

DRUGS (13)
  1. VIOXX [Suspect]
     Indication: ARTHRALGIA
     Route: 048
     Dates: start: 20040401, end: 20040812
  2. SYNTHROID [Concomitant]
     Route: 065
  3. NORVASC [Concomitant]
     Route: 065
  4. DETROL LA [Concomitant]
     Route: 065
  5. ATENOLOL [Concomitant]
     Route: 065
  6. EZETROL [Concomitant]
     Route: 065
  7. COZAAR [Concomitant]
     Route: 065
  8. SINGULAIR [Concomitant]
     Route: 065
  9. ZOCOR [Concomitant]
     Route: 065
  10. FUROSEMIDE [Concomitant]
     Route: 065
  11. LISINOPRIL [Concomitant]
     Route: 065
  12. AMBIEN [Concomitant]
     Route: 065
  13. AMOXICILLIN [Concomitant]
     Route: 065

REACTIONS (11)
  - ARTHROPATHY [None]
  - BLOOD CHOLESTEROL INCREASED [None]
  - FIBROMYALGIA [None]
  - HYPERTENSION [None]
  - OVERDOSE [None]
  - RENAL DISORDER [None]
  - RENAL FAILURE [None]
  - ROTATOR CUFF SYNDROME [None]
  - SINUS DISORDER [None]
  - TONSILLAR DISORDER [None]
  - UTERINE DISORDER [None]
